FAERS Safety Report 23810005 (Version 1)
Quarter: 2024Q2

REPORT INFORMATION
  Report Type: Spontaneous
  Country: US (occurrence: US)
  Receive Date: 20240502
  Receipt Date: 20240502
  Transmission Date: 20240715
  Serious: Yes (Other)
  Sender: FDA-Public Use
  Company Number: US-AMGEN-USASP2024083721

PATIENT
  Age: 52 Year
  Sex: Female

DRUGS (2)
  1. NPLATE [Suspect]
     Active Substance: ROMIPLOSTIM
     Indication: Thrombocytopenia
     Dosage: 10 MILLIGRAM/KILOGRAM, QWK
     Route: 065
     Dates: start: 2024
  2. NPLATE [Suspect]
     Active Substance: ROMIPLOSTIM
     Indication: Off label use

REACTIONS (2)
  - Platelet count decreased [Unknown]
  - Off label use [Unknown]

NARRATIVE: CASE EVENT DATE: 20240101
